FAERS Safety Report 25699451 (Version 1)
Quarter: 2025Q3

REPORT INFORMATION
  Report Type: Spontaneous
  Country: ET (occurrence: ET)
  Receive Date: 20250819
  Receipt Date: 20250819
  Transmission Date: 20251020
  Serious: Yes (Other)
  Sender: RANBAXY
  Company Number: ET-SUN PHARMACEUTICAL INDUSTRIES INC-2025RR-522787

PATIENT
  Age: 41 Year
  Sex: Female

DRUGS (3)
  1. WARFARIN [Suspect]
     Active Substance: WARFARIN
     Indication: Anticoagulant therapy
     Dosage: 5 MILLIGRAM, DAILY
     Route: 048
  2. WARFARIN [Suspect]
     Active Substance: WARFARIN
     Dosage: 5 MILLIGRAM, DAILY
  3. HEPARIN [Suspect]
     Active Substance: HEPARIN SODIUM
     Indication: Anticoagulant therapy
     Dosage: 12500 IU INTERNATIONAL UNIT(S), BID
     Route: 058

REACTIONS (1)
  - Condition aggravated [Unknown]
